FAERS Safety Report 6371660-3 (Version None)
Quarter: 2009Q3

REPORT INFORMATION
  Report Type: 
  Country: None (occurrence: None)
  Receive Date: 20090923
  Receipt Date: 20080425
  Transmission Date: 20100115
  Serious: No
  Sender: FDA-Public Use
  Company Number: US-ASTRAZENECA-2008UW04629

PATIENT
  Age: 56 Year
  Sex: Male
  Weight: 92.1 kg

DRUGS (17)
  1. SEROQUEL [Suspect]
     Indication: SCHIZOPHRENIA
     Dosage: 100-200 MG
     Route: 048
     Dates: start: 20050925, end: 20071105
  2. ACTOS [Concomitant]
  3. NORVASC [Concomitant]
  4. CATAPRES [Concomitant]
  5. DOVONEX [Concomitant]
  6. ASPIRIN [Concomitant]
  7. OMEPRAZOLE [Concomitant]
  8. CLOBETASOL PROPIONATE [Concomitant]
  9. TERBINAFINE HCL [Concomitant]
  10. LISINOPRIL [Concomitant]
  11. DOCUSATE [Concomitant]
  12. METFORMIN HCL [Concomitant]
  13. HYDROCHLOROTHIAZIDE [Concomitant]
  14. MINOXIDIL [Concomitant]
  15. CALCITRIOL [Concomitant]
  16. ATENOLOL [Concomitant]
  17. ACETAMINOPHEN AND CODEINE PHOSPHATE [Concomitant]

REACTIONS (10)
  - CHANGE OF BOWEL HABIT [None]
  - CONSTIPATION [None]
  - DIABETES MELLITUS [None]
  - DIPLOPIA [None]
  - DYSAESTHESIA [None]
  - LIBIDO DECREASED [None]
  - MYCOSIS FUNGOIDES [None]
  - NOCTURIA [None]
  - T-CELL LYMPHOMA [None]
  - VISION BLURRED [None]
